FAERS Safety Report 21191738 (Version 3)
Quarter: 2022Q3

REPORT INFORMATION
  Report Type: Report from Study
  Country: US (occurrence: US)
  Receive Date: 20220809
  Receipt Date: 20220930
  Transmission Date: 20221027
  Serious: Yes (Hospitalization, Other)
  Sender: FDA-Public Use
  Company Number: US-ABBVIE-22K-163-4495662-00

PATIENT
  Sex: Male

DRUGS (3)
  1. IMBRUVICA [Suspect]
     Active Substance: IBRUTINIB
     Indication: Chronic lymphocytic leukaemia
     Route: 048
     Dates: start: 202207
  2. LAMICTAL [Concomitant]
     Active Substance: LAMOTRIGINE
     Indication: Seizure
     Route: 065
  3. MAGNESIUM [Concomitant]
     Active Substance: MAGNESIUM
     Indication: Seizure
     Route: 065

REACTIONS (10)
  - Immunodeficiency [Unknown]
  - Encephalitis [Unknown]
  - Herpes zoster [Unknown]
  - Meningitis [Unknown]
  - Pneumonia [Not Recovered/Not Resolved]
  - Dysphagia [Unknown]
  - White blood cell count abnormal [Not Recovered/Not Resolved]
  - Atrial fibrillation [Unknown]
  - Dementia [Unknown]
  - Hypophagia [Unknown]

NARRATIVE: CASE EVENT DATE: 20220101
